FAERS Safety Report 13604349 (Version 1)
Quarter: 2017Q2

REPORT INFORMATION
  Report Type: Spontaneous
  Country: US (occurrence: US)
  Receive Date: 20170601
  Receipt Date: 20170601
  Transmission Date: 20170830
  Serious: Yes (Other)
  Sender: FDA-Public Use
  Company Number: None

PATIENT
  Age: 59 Year
  Sex: Female
  Weight: 53.1 kg

DRUGS (11)
  1. SOLARAY BUFFERED VITAMIN C [Concomitant]
  2. FLOVENT HFA [Concomitant]
     Active Substance: FLUTICASONE PROPIONATE
  3. COQ10 [Concomitant]
     Active Substance: UBIDECARENONE
  4. MINI MULTI VITAMINS BY CARLSON [Concomitant]
  5. LEVALBUTEROL TARTRATE. [Suspect]
     Active Substance: LEVALBUTEROL TARTRATE
     Indication: ASTHMA EXERCISE INDUCED
     Dosage: OTHER STRENGTH:MCG;QUANTITY:200 INHALATION(S);OTHER FREQUENCY:BEFORE EXERCISE;?
     Route: 055
     Dates: start: 20170428, end: 20170507
  6. XOPENEX LEVALBUTEROL TARTRATE HFA [Concomitant]
  7. ADORE- CALCIUM CHEWS [Concomitant]
  8. TURMERIC [Concomitant]
     Active Substance: HERBALS\TURMERIC
  9. LEVALBUTEROL TARTRATE. [Suspect]
     Active Substance: LEVALBUTEROL TARTRATE
     Indication: PROPHYLAXIS
     Dosage: OTHER STRENGTH:MCG;QUANTITY:200 INHALATION(S);OTHER FREQUENCY:BEFORE EXERCISE;?
     Route: 055
     Dates: start: 20170428, end: 20170507
  10. OMEGA 3 FATTY ACIDS BY CARLSON [Concomitant]
  11. VITA-COST GINGER [Concomitant]

REACTIONS (7)
  - Agitation [None]
  - Product substitution issue [None]
  - Chest discomfort [None]
  - Bronchospasm paradoxical [None]
  - Heart rate increased [None]
  - Extra dose administered [None]
  - Feeling abnormal [None]

NARRATIVE: CASE EVENT DATE: 20170502
